FAERS Safety Report 11558845 (Version 1)
Quarter: 2015Q3

REPORT INFORMATION
  Report Type: Spontaneous
  Country: US (occurrence: US)
  Receive Date: 20150916
  Receipt Date: 20150916
  Transmission Date: 20151125
  Serious: No
  Sender: FDA-Public Use
  Company Number: US-ELI_LILLY_AND_COMPANY-US200807005449

PATIENT
  Sex: Female

DRUGS (2)
  1. FORTEO [Suspect]
     Active Substance: TERIPARATIDE
  2. FORTEO [Suspect]
     Active Substance: TERIPARATIDE
     Dosage: UNK, UNK
     Dates: start: 2007

REACTIONS (5)
  - Nervousness [Unknown]
  - Injection site mass [Recovering/Resolving]
  - Abdominal distension [Recovered/Resolved]
  - Skin lesion [Unknown]
  - Injection site erythema [Unknown]
